FAERS Safety Report 24145776 (Version 1)
Quarter: 2024Q3

REPORT INFORMATION
  Report Type: Spontaneous
  Country: GB (occurrence: GB)
  Receive Date: 20240729
  Receipt Date: 20240729
  Transmission Date: 20241017
  Serious: Yes (Other)
  Sender: NOVO NORDISK
  Company Number: None

PATIENT
  Age: 48 Year
  Sex: Female
  Weight: 70 kg

DRUGS (6)
  1. WEGOVY [Suspect]
     Active Substance: SEMAGLUTIDE
     Indication: Weight control
     Dosage: UNK
     Dates: start: 20240108
  2. WEGOVY [Suspect]
     Active Substance: SEMAGLUTIDE
     Dosage: 0.25 MG (STOPPED FOR 2 MONTHS AND RESTARTED)
     Dates: end: 20240717
  3. WEGOVY [Suspect]
     Active Substance: SEMAGLUTIDE
     Dosage: 1 MG
  4. WEGOVY [Suspect]
     Active Substance: SEMAGLUTIDE
     Dosage: UNK(STOPPED FOR 1 MONTH AND RESTARTED)
  5. ESTROGEL [Concomitant]
     Active Substance: ESTRADIOL
     Indication: Menopause
     Dosage: UNK
     Dates: start: 20200405
  6. UTROGESTAN [Concomitant]
     Active Substance: PROGESTERONE
     Indication: Menopause
     Dosage: UNK
     Dates: start: 20200405

REACTIONS (1)
  - Cystitis interstitial [Recovering/Resolving]

NARRATIVE: CASE EVENT DATE: 20240406
